FAERS Safety Report 9764317 (Version 2)
Quarter: 2013Q4

REPORT INFORMATION
  Report Type: Spontaneous
  Country: KR (occurrence: KR)
  Receive Date: 20131217
  Receipt Date: 20131217
  Transmission Date: 20140711
  Serious: No
  Sender: FDA-Public Use
  Company Number: 2012SP000065

PATIENT
  Age: 73 Year
  Sex: Male

DRUGS (7)
  1. VANCOMYCIN [Suspect]
     Indication: ENDOPHTHALMITIS
     Route: 047
  2. PREDNISOLONE [Suspect]
     Indication: ENDOPHTHALMITIS
     Route: 061
  3. MOXIFLOXACIN [Suspect]
     Indication: ENDOPHTHALMITIS
     Route: 061
  4. CEFTAZIDIME [Suspect]
     Indication: ENDOPHTHALMITIS
     Route: 031
  5. ISEPAMICIN [Suspect]
     Indication: ENDOPHTHALMITIS
  6. ATROPINE [Suspect]
     Indication: ENDOPHTHALMITIS
     Route: 061
  7. DEXAMETHASONE [Suspect]
     Indication: ENDOPHTHALMITIS

REACTIONS (1)
  - Drug ineffective [Unknown]
